FAERS Safety Report 16640910 (Version 3)
Quarter: 2019Q3

REPORT INFORMATION
  Report Type: Report from Study
  Country: US (occurrence: US)
  Receive Date: 20190729
  Receipt Date: 20190820
  Transmission Date: 20191004
  Serious: No
  Sender: FDA-Public Use
  Company Number: PHEH2019US030948

PATIENT
  Sex: Female

DRUGS (1)
  1. COSENTYX [Suspect]
     Active Substance: SECUKINUMAB
     Indication: PSORIASIS
     Dosage: 300 MG, QW (QW FOR 5 WEEKS THEN Q4W)
     Route: 058

REACTIONS (3)
  - Impaired healing [Unknown]
  - Ankle fracture [Not Recovered/Not Resolved]
  - Limb discomfort [Unknown]
